FAERS Safety Report 7903495-1 (Version None)
Quarter: 2011Q4

REPORT INFORMATION
  Report Type: 
  Country: None (occurrence: None)
  Receive Date: 20111107
  Receipt Date: 20111028
  Transmission Date: 20120403
  Serious: Yes (Hospitalization)
  Sender: FDA-Public Use
  Company Number: CPI 2772

PATIENT
  Age: 21 Year
  Sex: Female

DRUGS (5)
  1. METOCLOPRAMIDE [Concomitant]
  2. DIPHENHYDRAMINE HCL [Concomitant]
  3. PROMETHAZINE [Concomitant]
  4. 15 TO 20 500 MG ACETAMINOPHEN TABLETS [Concomitant]
  5. ACETYLCYSTEINE [Suspect]
     Indication: OVERDOSE
     Dosage: 150MG/KG 1H

REACTIONS (16)
  - GRAND MAL CONVULSION [None]
  - BLOOD POTASSIUM DECREASED [None]
  - MYDRIASIS [None]
  - OVERDOSE [None]
  - FEELING ABNORMAL [None]
  - VOMITING [None]
  - PANCREATITIS [None]
  - BLOOD BICARBONATE DECREASED [None]
  - NAUSEA [None]
  - SLUGGISHNESS [None]
  - BRAIN HERNIATION [None]
  - DRUG PRESCRIBING ERROR [None]
  - STATUS EPILEPTICUS [None]
  - BRAIN OEDEMA [None]
  - ALANINE AMINOTRANSFERASE INCREASED [None]
  - AGITATION [None]
